FAERS Safety Report 4788457-8 (Version None)
Quarter: 2005Q4

REPORT INFORMATION
  Report Type: 
  Country: None (occurrence: None)
  Receive Date: 20051003
  Receipt Date: 20050919
  Transmission Date: 20060501
  Serious: Yes (Life-Threatening)
  Sender: FDA-Public Use
  Company Number: 2005-IT-00188IT

PATIENT
  Age: 79 Year
  Sex: Female

DRUGS (2)
  1. BUSCOPAN (HYOSCINE BUTYLBROMIDE) (NR) (SCOPOLAMINBUTYLBROMID) [Suspect]
     Indication: OESOPHAGOGASTROSCOPY
     Dosage: INTRAVENOUS
     Route: 042
     Dates: start: 20050809, end: 20050809
  2. IPNOVEL (MIDAZOLAM) [Concomitant]

REACTIONS (2)
  - CARDIO-RESPIRATORY ARREST [None]
  - OFF LABEL USE [None]
